FAERS Safety Report 22050142 (Version 2)
Quarter: 2023Q1

REPORT INFORMATION
  Report Type: Spontaneous
  Country: US (occurrence: US)
  Receive Date: 20230301
  Receipt Date: 20230307
  Transmission Date: 20230417
  Serious: No
  Sender: FDA-Public Use
  Company Number: US-SA-SAC20230228001270

PATIENT

DRUGS (7)
  1. TAXOTERE [Suspect]
     Active Substance: DOCETAXEL
     Dosage: UNK
     Route: 065
  2. PESTO [Concomitant]
     Dosage: UNK
  3. KADCYLA [Concomitant]
     Active Substance: ADO-TRASTUZUMAB EMTANSINE
     Dosage: UNK
  4. HERCEPTIN [Concomitant]
     Active Substance: TRASTUZUMAB
     Dosage: UNK
  5. PERJETA [Concomitant]
     Active Substance: PERTUZUMAB
     Dosage: UNK
  6. CARBOPLATIN [Concomitant]
     Active Substance: CARBOPLATIN
     Dosage: UNK
  7. PERTUZUMAB\TRASTUZUMAB [Concomitant]
     Active Substance: PERTUZUMAB\TRASTUZUMAB
     Dosage: UNK

REACTIONS (4)
  - Urticaria [Unknown]
  - Rash erythematous [Unknown]
  - Skin swelling [Recovered/Resolved]
  - Rash [Unknown]
